FAERS Safety Report 4831119-9 (Version None)
Quarter: 2005Q4

REPORT INFORMATION
  Report Type: 
  Country: None (occurrence: None)
  Receive Date: 20051114
  Receipt Date: 20051103
  Transmission Date: 20060501
  Serious: Yes (Death, Other)
  Sender: FDA-Public Use
  Company Number: 2005-11-0238

PATIENT
  Sex: Female

DRUGS (4)
  1. ALBUTEROL SULFATE HFA [Suspect]
     Dosage: ORAL AER INH
     Route: 055
  2. IPRATROPIUM BROMIDE [Suspect]
     Dosage: 20 MCG INHALATION
     Route: 055
  3. PREDNISOLONE [Suspect]
     Dosage: ORAL
     Route: 048
  4. FOSAMAX [Suspect]

REACTIONS (2)
  - CARDIAC FAILURE [None]
  - INFECTIVE EXACERBATION OF CHRONIC OBSTRUCTIVE AIRWAYS DISEASE [None]
